FAERS Safety Report 5920308-8 (Version None)
Quarter: 2008Q4

REPORT INFORMATION
  Report Type: 
  Country: None (occurrence: None)
  Receive Date: 20081016
  Receipt Date: 20081007
  Transmission Date: 20090506
  Serious: Yes (Other)
  Sender: FDA-Public Use
  Company Number: ZA-AVENTIS-200819712GDDC

PATIENT

DRUGS (1)
  1. TAXOTERE [Suspect]
     Dosage: DOSE: UNK
     Route: 042

REACTIONS (1)
  - PAPILLOEDEMA [None]
